FAERS Safety Report 5146116-6 (Version None)
Quarter: 2006Q4

REPORT INFORMATION
  Report Type: 
  Country: None (occurrence: None)
  Receive Date: 20061108
  Receipt Date: 20041028
  Transmission Date: 20070319
  Serious: Yes (Hospitalization, Disabling)
  Sender: FDA-Public Use
  Company Number: US-ROCHE-384943

PATIENT
  Age: 21 Year
  Sex: Male
  Weight: 66.7 kg

DRUGS (1)
  1. ACCUTANE [Suspect]
     Indication: ACNE
     Route: 048
     Dates: start: 19981130, end: 19990415

REACTIONS (24)
  - ANAEMIA [None]
  - BLOOD BILIRUBIN INCREASED [None]
  - CARCINOEMBRYONIC ANTIGEN INCREASED [None]
  - COLITIS [None]
  - COLITIS ULCERATIVE [None]
  - COLONIC POLYP [None]
  - COLONIC STENOSIS [None]
  - CONSTIPATION [None]
  - CROHN'S DISEASE [None]
  - DRY SKIN [None]
  - EMOTIONAL DISTRESS [None]
  - GASTROINTESTINAL DISORDER [None]
  - GASTROINTESTINAL HAEMORRHAGE [None]
  - GASTROINTESTINAL INJURY [None]
  - GASTROOESOPHAGEAL REFLUX DISEASE [None]
  - HEPATIC ENZYME INCREASED [None]
  - INFLAMMATORY BOWEL DISEASE [None]
  - INGUINAL HERNIA [None]
  - INTESTINAL HAEMORRHAGE [None]
  - JOINT INJURY [None]
  - LYMPHADENOPATHY [None]
  - METAPLASIA [None]
  - POUCHITIS [None]
  - RECTAL HAEMORRHAGE [None]
